FAERS Safety Report 8958573 (Version 1)
Quarter: 2012Q4

REPORT INFORMATION
  Report Type: Spontaneous
  Country: US (occurrence: None)
  Receive Date: 20121113
  Receipt Date: 20121113
  Transmission Date: 20130627
  Serious: No
  Sender: FDA-Public Use
  Company Number: None

PATIENT
  Age: 6 Year
  Sex: Male
  Weight: 21.77 kg

DRUGS (2)
  1. RISPERIDONE [Suspect]
     Indication: MOOD DISORDER NOS
     Route: 048
     Dates: start: 20121101, end: 20121109
  2. RISPERIDONE [Suspect]
     Indication: ADHD
     Route: 048
     Dates: start: 20121101, end: 20121109

REACTIONS (2)
  - Somnolence [None]
  - Dystonia [None]
